FAERS Safety Report 22049598 (Version 1)
Quarter: 2023Q1

REPORT INFORMATION
  Report Type: Spontaneous
  Country: US (occurrence: US)
  Receive Date: 20230301
  Receipt Date: 20230301
  Transmission Date: 20230417
  Serious: Yes (Hospitalization)
  Sender: FDA-Public Use
  Company Number: US-MYLANLABS-2023M1019874

PATIENT
  Age: 73 Year
  Sex: Female

DRUGS (4)
  1. INSULIN NOS [Suspect]
     Active Substance: INSULIN NOS
     Indication: Euglycaemic diabetic ketoacidosis
     Dosage: UNK (INFUSION)
     Route: 042
  2. INSULIN NOS [Suspect]
     Active Substance: INSULIN NOS
     Dosage: UNK (INSULIN INFUSION AT PEAK } 5 UNITS/HOUR)
     Route: 042
  3. DEXTROSE [Suspect]
     Active Substance: DEXTROSE
     Indication: Euglycaemic diabetic ketoacidosis
     Dosage: UNK, ESCALATING EXPOSURE
     Route: 042
  4. DEXTROSE [Suspect]
     Active Substance: DEXTROSE
     Indication: Euglycaemic diabetic ketoacidosis
     Dosage: UNK, ESCALATING EXPOSURE (ENTERAL ROUTE)
     Route: 065

REACTIONS (1)
  - Drug ineffective [Unknown]
